FAERS Safety Report 6368378-X (Version None)
Quarter: 2009Q3

REPORT INFORMATION
  Report Type: 
  Country: None (occurrence: None)
  Receive Date: 20090922
  Receipt Date: 20090911
  Transmission Date: 20100115
  Serious: Yes (Life-Threatening, Hospitalization)
  Sender: FDA-Public Use
  Company Number: JP-JNJFOC-20090705238

PATIENT
  Sex: Female
  Weight: 33 kg

DRUGS (16)
  1. REMICADE [Suspect]
     Dosage: 7TH INFUSION
     Route: 042
  2. REMICADE [Suspect]
     Dosage: 5 INFUSIONS ON UNSPECIFIED DATES
     Route: 042
  3. REMICADE [Suspect]
     Indication: RHEUMATOID ARTHRITIS
     Route: 042
  4. PNEUMOCOCCAL VACCINE [Suspect]
     Indication: PROPHYLAXIS
  5. RHEUMATREX [Suspect]
     Indication: RHEUMATOID ARTHRITIS
     Route: 048
  6. PREDONINE [Suspect]
     Indication: RHEUMATOID ARTHRITIS
     Route: 048
  7. FOLIAMIN [Concomitant]
     Indication: PROPHYLAXIS
     Route: 048
  8. ISCOTIN [Concomitant]
     Indication: ANTIBIOTIC PROPHYLAXIS
     Route: 048
  9. LOXONIN [Concomitant]
     Indication: RHEUMATOID ARTHRITIS
     Route: 048
  10. MUCOSTA [Concomitant]
     Indication: PROPHYLAXIS AGAINST GASTROINTESTINAL ULCER
     Route: 048
  11. DAI-KENCHU-TO [Concomitant]
     Indication: CONSTIPATION
     Route: 048
  12. FAMOTIDINE [Concomitant]
     Indication: PROPHYLAXIS AGAINST GASTROINTESTINAL ULCER
     Route: 048
  13. PANPYOTIN [Concomitant]
     Indication: CONSTIPATION
     Route: 048
  14. MAGNESIUM OXIDE [Concomitant]
     Indication: CONSTIPATION
     Route: 048
  15. LAC B [Concomitant]
     Indication: PROPHYLAXIS
     Route: 048
  16. MICARDIS [Concomitant]
     Route: 048

REACTIONS (4)
  - ASTHENIA [None]
  - EMPHYSEMA [None]
  - PNEUMONIA [None]
  - SPINAL COMPRESSION FRACTURE [None]
